FAERS Safety Report 8887069 (Version 3)
Quarter: 2012Q4

REPORT INFORMATION
  Report Type: 
  Country: US (occurrence: US)
  Receive Date: 20121105
  Receipt Date: 20121210
  Transmission Date: 20130627
  Serious: Yes (Other)
  Sender: FDA-Public Use
  Company Number: PHEH2012US021089

PATIENT
  Sex: Female

DRUGS (7)
  1. DIOVAN HCT [Suspect]
     Dosage: UNK UKN, UNK
  2. DIOVAN [Suspect]
     Dosage: 320 mg, UNK
     Route: 048
  3. FLUCONAZOLE [Suspect]
     Dosage: UNK UKN, UNK
  4. ASPIRIN [Suspect]
  5. TORADOL [Suspect]
  6. OXYBUTYNIN [Concomitant]
  7. WARFARIN [Concomitant]

REACTIONS (9)
  - Drug hypersensitivity [Unknown]
  - Lip swelling [Unknown]
  - Dyspnoea [Unknown]
  - Dizziness [Unknown]
  - Pharyngeal oedema [Unknown]
  - Eye swelling [Unknown]
  - Oedema peripheral [Unknown]
  - Product packaging issue [Unknown]
  - Hypertension [Unknown]
